FAERS Safety Report 23949069 (Version 1)
Quarter: 2024Q2

REPORT INFORMATION
  Report Type: Spontaneous
  Country: PL (occurrence: PL)
  Receive Date: 20240607
  Receipt Date: 20240607
  Transmission Date: 20240716
  Serious: Yes (Hospitalization)
  Sender: FDA-Public Use
  Company Number: PL-URPL-DML-MLP.4401.1.4842.2021

PATIENT
  Age: 2 Year
  Sex: Male
  Weight: 12 kg

DRUGS (1)
  1. EUTHYROX [Suspect]
     Active Substance: LEVOTHYROXINE SODIUM
     Indication: Accidental exposure to product by child
     Dosage: DOSE UNKNOWN; ACCIDENTALLY TAKING A FEW PILLS, PARENTS DON^T KNOW HOW MANY HE TOOK.
     Route: 048
     Dates: start: 20210618, end: 20210618

REACTIONS (5)
  - Blood thyroid stimulating hormone decreased [Recovered/Resolved]
  - Agitation [Recovered/Resolved]
  - Restlessness [Recovered/Resolved]
  - Thyroxine free increased [Recovered/Resolved]
  - Accidental exposure to product by child [Recovered/Resolved]
